FAERS Safety Report 5334582-2 (Version None)
Quarter: 2007Q2

REPORT INFORMATION
  Report Type: 
  Country: None (occurrence: None)
  Receive Date: 20070525
  Receipt Date: 20070514
  Transmission Date: 20071010
  Serious: Yes (Hospitalization)
  Sender: FDA-Public Use
  Company Number: US-JNJFOC-20061105928

PATIENT
  Sex: Female
  Weight: 75.75 kg

DRUGS (5)
  1. ORTHO EVRA [Suspect]
     Indication: CONTRACEPTION
     Route: 062
  2. MERCAPTOPURINE [Concomitant]
     Indication: CROHN'S DISEASE
  3. LISINOPRIL [Concomitant]
     Indication: DRUG USE FOR UNKNOWN INDICATION
  4. VITAMIN B-12 [Concomitant]
     Indication: DRUG USE FOR UNKNOWN INDICATION
  5. ASACOL [Concomitant]
     Indication: CROHN'S DISEASE

REACTIONS (2)
  - EMBOLIC STROKE [None]
  - MITRAL VALVE INCOMPETENCE [None]
